FAERS Safety Report 23874999 (Version 1)
Quarter: 2024Q2

REPORT INFORMATION
  Report Type: Spontaneous
  Country: US (occurrence: None)
  Receive Date: 20240518
  Receipt Date: 20240518
  Transmission Date: 20240716
  Serious: Yes (Hospitalization)
  Sender: FDA-Public Use
  Company Number: None

PATIENT
  Age: 31 Year
  Sex: Male
  Weight: 132 kg

DRUGS (1)
  1. SULFUR HEXAFLUORIDE [Suspect]
     Active Substance: SULFUR HEXAFLUORIDE
     Indication: Echocardiogram
     Dosage: 3 ML INTRAVENOUS
     Route: 042
     Dates: start: 20240515, end: 20240515

REACTIONS (6)
  - Seizure [None]
  - Tachycardia [None]
  - Apnoea [None]
  - Cardiac arrest [None]
  - Hypotension [None]
  - Headache [None]

NARRATIVE: CASE EVENT DATE: 20240515
